FAERS Safety Report 18205238 (Version 21)
Quarter: 2022Q3

REPORT INFORMATION
  Report Type: Spontaneous
  Country: CA (occurrence: CA)
  Receive Date: 20200827
  Receipt Date: 20220712
  Transmission Date: 20221027
  Serious: Yes (Other)
  Sender: FDA-Public Use
  Company Number: CA-CELLTRION INC.-2018CA025105

PATIENT

DRUGS (37)
  1. INFLECTRA [Suspect]
     Active Substance: INFLIXIMAB-DYYB
     Indication: Colitis ulcerative
     Dosage: 5 MG/KG, AT 0, 2, 6 WEEKS, THEN EVERY 8 WEEKS
     Route: 042
     Dates: start: 20181214
  2. INFLECTRA [Suspect]
     Active Substance: INFLIXIMAB-DYYB
     Dosage: 10 MG/KG, (0 WEEK DOSE) AT 0, 2, 6 WEEKS, THEN EVERY 8 WEEKS
     Route: 042
     Dates: start: 20181214
  3. INFLECTRA [Suspect]
     Active Substance: INFLIXIMAB-DYYB
     Dosage: 10 MG/KG Q 0, 2, 6 AND THEN EVERY 8 WEEK DOSE
     Route: 042
     Dates: start: 20181214
  4. INFLECTRA [Suspect]
     Active Substance: INFLIXIMAB-DYYB
     Dosage: 5 MG/KG, AT 0, 2, 6 WEEKS, THEN EVERY 8 WEEKS
     Route: 042
     Dates: start: 20181224
  5. INFLECTRA [Suspect]
     Active Substance: INFLIXIMAB-DYYB
     Dosage: 10 MG/KG, (2 WEEK DOSE) AT 0, 2, 6 WEEKS, THEN EVERY 8 WEEKS
     Route: 042
     Dates: start: 20181224
  6. INFLECTRA [Suspect]
     Active Substance: INFLIXIMAB-DYYB
     Dosage: 10 MG/KG, AT 0, 2, 6 WEEKS, THEN EVERY 8 WEEKS (Q 6 WEEKS DOSE)
     Route: 042
     Dates: start: 20190123
  7. INFLECTRA [Suspect]
     Active Substance: INFLIXIMAB-DYYB
     Dosage: 10 MG/KG, AT 0, 2, 6 WEEKS, THEN EVERY 8 WEEKS
     Route: 042
     Dates: start: 20190123
  8. INFLECTRA [Suspect]
     Active Substance: INFLIXIMAB-DYYB
     Dosage: 10 MG/KG, AT 0, 2, 6 WEEKS, THEN EVERY 8 WEEKS
     Route: 042
     Dates: start: 20190307
  9. INFLECTRA [Suspect]
     Active Substance: INFLIXIMAB-DYYB
     Dosage: 10 MG/KG,  EVERY 4 WEEKS
     Route: 042
     Dates: start: 20190404, end: 20201103
  10. INFLECTRA [Suspect]
     Active Substance: INFLIXIMAB-DYYB
     Dosage: 10 MG/KG,  EVERY 4 WEEKS
     Route: 042
     Dates: start: 20190430
  11. INFLECTRA [Suspect]
     Active Substance: INFLIXIMAB-DYYB
     Dosage: 10 MG/KG,  EVERY 4 WEEKS
     Route: 042
     Dates: start: 20190722
  12. INFLECTRA [Suspect]
     Active Substance: INFLIXIMAB-DYYB
     Dosage: 10 MG/KG,  EVERY 4 WEEKS
     Route: 042
     Dates: start: 20190903
  13. INFLECTRA [Suspect]
     Active Substance: INFLIXIMAB-DYYB
     Dosage: 10 MG/KG,  EVERY 4 WEEKS
     Route: 042
     Dates: start: 20191003
  14. INFLECTRA [Suspect]
     Active Substance: INFLIXIMAB-DYYB
     Dosage: 10 MG/KG,  EVERY 4 WEEKS
     Route: 042
     Dates: start: 20200128
  15. INFLECTRA [Suspect]
     Active Substance: INFLIXIMAB-DYYB
     Dosage: 10 MG/KG,  EVERY 4 WEEKS
     Route: 042
     Dates: start: 20200320
  16. INFLECTRA [Suspect]
     Active Substance: INFLIXIMAB-DYYB
     Dosage: 10 MG/KG,  EVERY 4 WEEKS
     Route: 042
     Dates: start: 20200417
  17. INFLECTRA [Suspect]
     Active Substance: INFLIXIMAB-DYYB
     Dosage: 10 MG/KG,  EVERY 4 WEEKS
     Route: 042
     Dates: start: 20200714
  18. INFLECTRA [Suspect]
     Active Substance: INFLIXIMAB-DYYB
     Dosage: 10 MG/KG,  EVERY 4 WEEKS
     Route: 042
     Dates: start: 20200820
  19. INFLECTRA [Suspect]
     Active Substance: INFLIXIMAB-DYYB
     Dosage: 10 MG/KG,  EVERY 4 WEEKS
     Route: 042
     Dates: start: 20200911
  20. INFLECTRA [Suspect]
     Active Substance: INFLIXIMAB-DYYB
     Dosage: 10 MG/KG,  EVERY 6 WEEKS
     Route: 042
     Dates: start: 20201214, end: 20210707
  21. INFLECTRA [Suspect]
     Active Substance: INFLIXIMAB-DYYB
     Dosage: 10 MG/KG,  EVERY 6 WEEKS
     Route: 042
     Dates: start: 20201214
  22. INFLECTRA [Suspect]
     Active Substance: INFLIXIMAB-DYYB
     Dosage: 10 MG/KG,  EVERY 6 WEEKS
     Route: 042
     Dates: start: 20210420
  23. INFLECTRA [Suspect]
     Active Substance: INFLIXIMAB-DYYB
     Dosage: 10 MG/KG,  EVERY 6 WEEKS
     Route: 042
     Dates: start: 20210609
  24. INFLECTRA [Suspect]
     Active Substance: INFLIXIMAB-DYYB
     Dosage: 10 MG/KG, EVERY 6 WEEKS
     Route: 042
     Dates: start: 20210720
  25. CORTISONE [Concomitant]
     Active Substance: CORTISONE
     Dosage: 10 MG
     Dates: start: 20200406
  26. CORTISONE [Concomitant]
     Active Substance: CORTISONE
     Dosage: 5 MG
     Dates: start: 20200418
  27. DEMEROL [Concomitant]
     Active Substance: MEPERIDINE HYDROCHLORIDE
     Indication: Pain
     Dosage: 50 MG TO 100 MG, EVERY 4 TO 6 HOURS
     Dates: start: 20181214
  28. DEMEROL [Concomitant]
     Active Substance: MEPERIDINE HYDROCHLORIDE
     Dosage: 1 DF (UNKNOWN DOSAGE AND FREQUENCY)
     Route: 065
  29. ISONIAZID [Concomitant]
     Active Substance: ISONIAZID
     Dosage: UNK
  30. LEUCOVORIN [Concomitant]
     Active Substance: LEUCOVORIN
     Dosage: UNK
  31. METHOTREXATE [Concomitant]
     Active Substance: METHOTREXATE
     Dosage: 20 MG, UNK
  32. PANTOPRAZOLE [Concomitant]
     Active Substance: PANTOPRAZOLE
     Dosage: UNK
  33. PREDNISONE [Concomitant]
     Active Substance: PREDNISONE
     Dosage: 1 DF (UNKNOWN DOSAGE AND FREQUENCY), DOSAGE INFO UNKNOWN
     Route: 065
  34. PREGABALIN [Concomitant]
     Active Substance: PREGABALIN
     Dosage: UNK
  35. SOLU-MEDROL [Concomitant]
     Active Substance: METHYLPREDNISOLONE SODIUM SUCCINATE
     Dosage: 1 DF
     Route: 042
  36. TRAMADOL ACET [Concomitant]
     Dosage: UNK
  37. VITAMIN B6 [Concomitant]
     Active Substance: PYRIDOXINE HYDROCHLORIDE
     Dosage: UNK

REACTIONS (33)
  - Hepatic cytolysis [Unknown]
  - Haemorrhage [Recovering/Resolving]
  - Ovarian cyst [Unknown]
  - Pancreatitis [Unknown]
  - Tooth infection [Recovered/Resolved]
  - Wound [Unknown]
  - Pericarditis [Not Recovered/Not Resolved]
  - Off label use [Unknown]
  - Off label use [Unknown]
  - Inappropriate schedule of product administration [Unknown]
  - Intentional product use issue [Unknown]
  - Palpitations [Unknown]
  - Heart rate increased [Recovered/Resolved]
  - Condition aggravated [Not Recovered/Not Resolved]
  - Poor quality sleep [Unknown]
  - Increased bronchial secretion [Unknown]
  - Pain in extremity [Unknown]
  - Localised infection [Recovered/Resolved]
  - Memory impairment [Unknown]
  - Abdominal pain lower [Recovering/Resolving]
  - Stress [Unknown]
  - Anxiety [Unknown]
  - Poor venous access [Unknown]
  - Alveolitis [Unknown]
  - Incision site pain [Unknown]
  - Fatigue [Not Recovered/Not Resolved]
  - Blood pressure increased [Not Recovered/Not Resolved]
  - Dyspnoea [Not Recovered/Not Resolved]
  - Musculoskeletal chest pain [Not Recovered/Not Resolved]
  - Night sweats [Not Recovered/Not Resolved]
  - Chest pain [Not Recovered/Not Resolved]
  - Pleural effusion [Unknown]
  - Somnolence [Unknown]

NARRATIVE: CASE EVENT DATE: 20181214
